FAERS Safety Report 20778732 (Version 3)
Quarter: 2022Q3

REPORT INFORMATION
  Report Type: Spontaneous
  Country: IT (occurrence: IT)
  Receive Date: 20220503
  Receipt Date: 20220724
  Transmission Date: 20221026
  Serious: Yes (Death, Other)
  Sender: FDA-Public Use
  Company Number: IT-ALXN-A202205198

PATIENT
  Sex: Female

DRUGS (2)
  1. SOLIRIS [Suspect]
     Active Substance: ECULIZUMAB
     Dosage: 1200 MG, Q2W
     Route: 042
     Dates: start: 20211210
  2. SOLIRIS [Suspect]
     Active Substance: ECULIZUMAB
     Indication: Atypical haemolytic uraemic syndrome
     Dosage: 900 MG, QW
     Route: 042
     Dates: start: 20211112

REACTIONS (13)
  - Multiple organ dysfunction syndrome [Fatal]
  - Paraplegia [Unknown]
  - Pneumonia klebsiella [Unknown]
  - Malignant hypertension [Unknown]
  - Cytopenia [Unknown]
  - Rhabdomyolysis [Unknown]
  - Haemolysis [Unknown]
  - Sepsis [Unknown]
  - Intestinal anastomosis [Unknown]
  - Condition aggravated [Unknown]
  - Sensory disturbance [Unknown]
  - Pleural effusion [Unknown]
  - Hyperaesthesia [Unknown]

NARRATIVE: CASE EVENT DATE: 20220201
